FAERS Safety Report 8145638-3 (Version None)
Quarter: 2012Q1

REPORT INFORMATION
  Report Type: 
  Country: None (occurrence: None)
  Receive Date: 20120217
  Receipt Date: 20120206
  Transmission Date: 20120608
  Serious: Yes (Hospitalization)
  Sender: FDA-Public Use
  Company Number: US-MYLANLABS-2011S1000185

PATIENT
  Age: 11 Year
  Sex: Male

DRUGS (45)
  1. DIAZEPAM [Suspect]
     Route: 048
     Dates: start: 20100702, end: 20100722
  2. CLINDAMYCIN PHOSPHATE [Suspect]
     Route: 042
     Dates: start: 20100708, end: 20100710
  3. PIPERACILLIN SODIUM [Suspect]
     Route: 041
     Dates: start: 20100715, end: 20100716
  4. BIOFERMIN T [Suspect]
     Route: 048
     Dates: start: 20100711, end: 20100718
  5. NICARDIPINE HYDROCHLORIDE [Suspect]
     Route: 041
     Dates: start: 20100622, end: 20100624
  6. OFLOXACIN [Suspect]
     Route: 047
     Dates: start: 20100728, end: 20100729
  7. HYALURONATE SODIUM [Suspect]
     Route: 047
     Dates: start: 20100723, end: 20100821
  8. ULTIVA [Suspect]
     Route: 042
     Dates: start: 20100621, end: 20100708
  9. MORPHINE HYDROCHLORIDE [Suspect]
     Route: 041
     Dates: start: 20100621, end: 20100709
  10. FAMOTIDINE [Suspect]
     Route: 048
     Dates: start: 20100626, end: 20100715
  11. CEFAZOLIN [Suspect]
     Route: 041
     Dates: start: 20100622, end: 20100624
  12. AMPICILLIN [Suspect]
     Route: 041
     Dates: start: 20100715, end: 20100716
  13. LIDOCAINE [Suspect]
     Route: 041
     Dates: start: 20100621, end: 20100709
  14. HYDROXYZINE HCL [Suspect]
     Route: 041
     Dates: start: 20100709, end: 20100709
  15. FLURBIPROFEN [Suspect]
     Route: 041
     Dates: start: 20100709, end: 20100709
  16. LANSOPRAZOLE [Suspect]
     Route: 048
     Dates: start: 20100628, end: 20100728
  17. DIAZEPAM [Suspect]
     Route: 048
     Dates: start: 20100622, end: 20100701
  18. FAMOTIDINE [Suspect]
     Route: 041
     Dates: start: 20100617, end: 20100626
  19. NITRAZEPAM [Suspect]
     Route: 041
     Dates: start: 20100617, end: 20100709
  20. PHENOBARBITAL TAB [Suspect]
     Route: 048
     Dates: start: 20100622, end: 20100709
  21. STREPTOCOCCUS FAECALIS [Suspect]
     Route: 048
     Dates: start: 20100711, end: 20100718
  22. OMEPRAZOLE [Suspect]
     Route: 041
     Dates: start: 20100716, end: 20100721
  23. MIDAZOLAM [Suspect]
     Route: 041
     Dates: start: 20100621, end: 20100621
  24. SPIRONOLACTONE [Suspect]
     Route: 048
     Dates: start: 20100626, end: 20100706
  25. HEPARIN SODIUM [Suspect]
     Route: 041
     Dates: start: 20100617
  26. DEXPANTHENOL [Suspect]
     Route: 041
     Dates: start: 20100604, end: 20100705
  27. SODIUM PICOSULFATE [Suspect]
     Route: 048
     Dates: start: 20100620, end: 20100620
  28. DEXAMETHASONE [Suspect]
     Route: 042
     Dates: start: 20100617, end: 20100622
  29. ATROPINE SULFATE [Suspect]
     Route: 041
     Dates: start: 20100617, end: 20100622
  30. ROCURONIUM BROMIDE [Suspect]
     Route: 041
     Dates: start: 20100617, end: 20100706
  31. ACETAMINOPHEN [Suspect]
     Route: 054
     Dates: start: 20100630, end: 20100716
  32. CEFTRIAXONE [Suspect]
     Indication: INFECTION
     Route: 041
     Dates: start: 20100630, end: 20100707
  33. RISPERIDONE [Suspect]
     Route: 048
     Dates: start: 20100702, end: 20100714
  34. ACETAMINOPHEN [Suspect]
     Indication: PYREXIA
     Route: 048
     Dates: start: 20100627, end: 20100716
  35. TRICLOFOS SODIUM [Suspect]
     Route: 048
     Dates: start: 20100628, end: 20100705
  36. ETIZOLAM [Suspect]
     Dosage: UNIT CONT:1
     Route: 048
     Dates: start: 20100701, end: 20100701
  37. FUROSEMIDE [Suspect]
     Route: 048
     Dates: start: 20100626, end: 20100706
  38. LACTOBACILLUS CASEI [Suspect]
     Route: 048
     Dates: start: 20100702, end: 20100709
  39. HEPARIN SODIUM [Suspect]
     Route: 041
     Dates: start: 20100808, end: 20100812
  40. EPINEPHRINE [Suspect]
     Route: 041
     Dates: start: 20100621, end: 20100621
  41. DEXMEDETOMIDINE HYDROCHLORIDE [Suspect]
     Route: 041
     Dates: start: 20100704, end: 20100705
  42. GLYCEROL 2.6% [Suspect]
     Indication: CONSTIPATION
     Route: 054
     Dates: start: 20100621
  43. GLYCEROL 2.6% [Suspect]
     Route: 041
     Dates: start: 20100617, end: 20100618
  44. CALCIUM GLUCONATE [Suspect]
     Route: 041
     Dates: start: 20100621, end: 20100621
  45. FENTANYL [Suspect]
     Route: 041
     Dates: start: 20100621, end: 20100708

REACTIONS (1)
  - DRUG RASH WITH EOSINOPHILIA AND SYSTEMIC SYMPTOMS [None]
